FAERS Safety Report 20907224 (Version 2)
Quarter: 2022Q3

REPORT INFORMATION
  Report Type: Spontaneous
  Country: US (occurrence: US)
  Receive Date: 20220602
  Receipt Date: 20220812
  Transmission Date: 20221026
  Serious: Yes (Hospitalization)
  Sender: FDA-Public Use
  Company Number: US-ELI_LILLY_AND_COMPANY-US202205011775

PATIENT
  Age: 18 Year
  Sex: Female

DRUGS (2)
  1. ETESEVIMAB [Suspect]
     Active Substance: ETESEVIMAB
     Indication: COVID-19 treatment
     Dosage: UNK, UNKNOWN
     Route: 065
     Dates: start: 2021
  2. BAMLANIVIMAB [Suspect]
     Active Substance: BAMLANIVIMAB
     Indication: COVID-19 treatment
     Dosage: UNK, UNKNOWN
     Route: 065
     Dates: start: 2021

REACTIONS (4)
  - Internal injury [Not Recovered/Not Resolved]
  - Skin lesion [Recovered/Resolved]
  - Post-acute COVID-19 syndrome [Not Recovered/Not Resolved]
  - Drug ineffective [Unknown]
